FAERS Safety Report 10267404 (Version 1)
Quarter: 2014Q2

REPORT INFORMATION
  Report Type: Spontaneous
  Country: US (occurrence: US)
  Receive Date: 20140630
  Receipt Date: 20140630
  Transmission Date: 20141212
  Serious: No
  Sender: FDA-Public Use
  Company Number: US-TEVA-490892USA

PATIENT
  Age: 31 Year
  Sex: Female
  Weight: 56.3 kg

DRUGS (4)
  1. PARAGARD 380A [Suspect]
     Indication: CONTRACEPTION
     Dates: start: 20140528, end: 20140623
  2. ALBUTEROL [Concomitant]
     Indication: ASTHMA
  3. CELEXA [Concomitant]
     Indication: DEPRESSION
  4. CELEXA [Concomitant]
     Indication: ADJUSTMENT DISORDER

REACTIONS (1)
  - Device expulsion [Recovered/Resolved]
